FAERS Safety Report 5317526-9 (Version None)
Quarter: 2007Q2

REPORT INFORMATION
  Report Type: 
  Country: None (occurrence: None)
  Receive Date: 20070507
  Receipt Date: 20070425
  Transmission Date: 20071010
  Serious: Yes (Other)
  Sender: FDA-Public Use
  Company Number: PHBS2007JP05234

PATIENT
  Sex: Female

DRUGS (3)
  1. FURTULON [Concomitant]
     Dosage: 100 MG, UNK
     Dates: start: 20060701
  2. ZOMETA [Suspect]
     Indication: BREAST CANCER
     Dosage: 4 MG, UNK
     Dates: start: 20060701, end: 20070302
  3. AREDIA [Suspect]
     Indication: BREAST CANCER
     Dosage: 90 MG
     Route: 042
     Dates: start: 20050101, end: 20060601

REACTIONS (3)
  - JAW DISORDER [None]
  - OSTEOMYELITIS [None]
  - TOOTH DISORDER [None]
